FAERS Safety Report 8081160-0 (Version None)
Quarter: 2012Q1

REPORT INFORMATION
  Report Type: 
  Country: None (occurrence: None)
  Receive Date: 20120130
  Receipt Date: 20110425
  Transmission Date: 20120608
  Serious: Yes (Hospitalization)
  Sender: FDA-Public Use
  Company Number: US-GLAXOSMITHKLINE-B0715663A

PATIENT
  Sex: Male
  Weight: 109.1 kg

DRUGS (6)
  1. METFFORMIN HYDROCHLORIDE [Concomitant]
  2. AVANDIA [Suspect]
     Indication: DIABETES MELLITUS
     Dosage: 8MG PER DAY
     Route: 048
     Dates: start: 20010101, end: 20061017
  3. LOPRESSOR [Concomitant]
  4. LANTUS [Concomitant]
  5. VASOTEC [Concomitant]
  6. VYTORIN [Concomitant]

REACTIONS (1)
  - MYOCARDIAL INFARCTION [None]
